FAERS Safety Report 7131469-X (Version None)
Quarter: 2010Q4

REPORT INFORMATION
  Report Type: 
  Country: None (occurrence: None)
  Receive Date: 20101201
  Receipt Date: 20101125
  Transmission Date: 20110411
  Serious: Yes (Death)
  Sender: FDA-Public Use
  Company Number: IT-TEVA-257131ISR

PATIENT
  Sex: Male

DRUGS (5)
  1. FLUOROURACIL [Suspect]
     Indication: COLON CANCER
     Route: 042
     Dates: start: 20100928, end: 20100929
  2. OXALIPLATIN [Suspect]
     Indication: COLON CANCER
     Route: 042
     Dates: start: 20100928, end: 20100928
  3. CALCIUM LEVOFOLINATE [Suspect]
     Indication: COLON CANCER
     Route: 042
     Dates: start: 20100928, end: 20100929
  4. DEXAMETHASONE SODIUM PHOSPHATE [Concomitant]
     Route: 048
     Dates: start: 20100907, end: 20101108
  5. GLUTATHIONE SODIUM [Concomitant]
     Indication: CHEMOTHERAPY NEUROTOXICITY ATTENUATION
     Route: 042
     Dates: start: 20100928, end: 20100928

REACTIONS (3)
  - ASTHENIA [None]
  - HYPERPYREXIA [None]
  - SEPSIS [None]
